FAERS Safety Report 18415427 (Version 1)
Quarter: 2020Q4

REPORT INFORMATION
  Report Type: Spontaneous
  Country: US (occurrence: US)
  Receive Date: 20201022
  Receipt Date: 20201022
  Transmission Date: 20210114
  Serious: Yes (Other)
  Sender: FDA-Public Use
  Company Number: US-FRESENIUS KABI-FK202011019

PATIENT

DRUGS (2)
  1. CARBOPLATIN. [Concomitant]
     Active Substance: CARBOPLATIN
     Indication: GLIOMA
     Dosage: ON DAY 1 EVERY 4 WEEKS
     Route: 065
  2. VINBLASTINE (MANUFACTURER UNKNOWN) [Suspect]
     Active Substance: VINBLASTINE
     Indication: GLIOMA
     Dosage: ON DAY 1, 8 AND 15 EVERY 4 WEEKS FOR UP TO 12 CYCLES
     Route: 065

REACTIONS (1)
  - Neuropathy peripheral [Unknown]
